FAERS Safety Report 9962811 (Version 1)
Quarter: 2014Q1

REPORT INFORMATION
  Report Type: Report from Study
  Country: US (occurrence: US)
  Receive Date: 20140305
  Receipt Date: 20140305
  Transmission Date: 20141002
  Serious: No
  Sender: FDA-Public Use
  Company Number: US-ABBVIE-13P-163-1111994-00

PATIENT
  Age: 51 Year
  Sex: Female
  Weight: 108.96 kg

DRUGS (8)
  1. HUMIRA [Suspect]
     Indication: PSORIATIC ARTHROPATHY
     Route: 058
     Dates: start: 2009, end: 201207
  2. HUMIRA [Suspect]
     Indication: PSORIASIS
  3. HUMIRA [Suspect]
     Indication: PSORIASIS
     Route: 058
     Dates: start: 201212, end: 201303
  4. HUMIRA [Suspect]
     Indication: PSORIATIC ARTHROPATHY
  5. SYNTHROID [Concomitant]
     Indication: PRODUCT USED FOR UNKNOWN INDICATION
  6. NEXIUM [Concomitant]
     Indication: PRODUCT USED FOR UNKNOWN INDICATION
  7. CELEXA [Concomitant]
     Indication: PRODUCT USED FOR UNKNOWN INDICATION
  8. UNKNOWN INHALER [Concomitant]
     Indication: ASTHMA

REACTIONS (11)
  - Immune system disorder [Unknown]
  - Ear infection [Unknown]
  - Psoriasis [Unknown]
  - Ear infection [Recovered/Resolved]
  - Psoriasis [Unknown]
  - Blister [Unknown]
  - Blister [Unknown]
  - Local swelling [Unknown]
  - Local swelling [Unknown]
  - Asthma [Unknown]
  - Dyspnoea [Unknown]
